FAERS Safety Report 20709852 (Version 1)
Quarter: 2022Q2

REPORT INFORMATION
  Report Type: Spontaneous
  Country: US (occurrence: None)
  Receive Date: 20220413
  Receipt Date: 20220413
  Transmission Date: 20220721
  Serious: No
  Sender: FDA-Public Use
  Company Number: None

PATIENT
  Age: 24 Year
  Sex: Female
  Weight: 54 kg

DRUGS (1)
  1. CIPROFLOXACIN [Suspect]
     Active Substance: CIPROFLOXACIN
     Indication: Urinary tract infection
     Dates: start: 20220205, end: 20220207

REACTIONS (4)
  - Panic attack [None]
  - Anxiety [None]
  - Impaired quality of life [None]
  - Paraesthesia [None]

NARRATIVE: CASE EVENT DATE: 20220207
